FAERS Safety Report 8596564 (Version 2)
Quarter: 2013Q4

REPORT INFORMATION
  Report Type: Spontaneous
  Country: US (occurrence: US)
  Receive Date: 20120605
  Receipt Date: 20131015
  Transmission Date: 20140711
  Serious: Yes (Hospitalization, Disabling)
  Sender: FDA-Public Use
  Company Number: US-ASTRAZENECA-2012SE35850

PATIENT
  Age: 39 Year
  Sex: Female

DRUGS (21)
  1. NEXIUM [Suspect]
     Indication: GASTROOESOPHAGEAL REFLUX DISEASE
     Dosage: TWO TIMES
     Route: 048
     Dates: start: 2005
  2. PRILOSEC [Suspect]
     Route: 048
  3. PEPCID [Concomitant]
  4. TUMS OTC [Concomitant]
  5. ALKA SELTZER [Concomitant]
  6. ROLAIDS [Concomitant]
  7. FLEXERIL [Concomitant]
  8. XANAX [Concomitant]
  9. PENICILLIN [Concomitant]
  10. TRAMADOL [Concomitant]
  11. RISPERDAL [Concomitant]
  12. CETRIZINE [Concomitant]
  13. LYRICA [Concomitant]
  14. PREDNISONE [Concomitant]
  15. DIAZEPAM [Concomitant]
  16. CHANTIX [Concomitant]
  17. PAXIL [Concomitant]
  18. SUCRALFATE [Concomitant]
  19. BACLOFEN [Concomitant]
  20. HYDROXYZINE PAMOATE [Concomitant]
  21. METHOCARBAMOL [Concomitant]

REACTIONS (11)
  - Spinal disorder [Unknown]
  - Musculoskeletal disorder [Unknown]
  - Carpal tunnel syndrome [Unknown]
  - Osteoporosis [Unknown]
  - Multiple fractures [Unknown]
  - Limb discomfort [Unknown]
  - Hand fracture [Unknown]
  - Vitamin D deficiency [Unknown]
  - Arthritis [Unknown]
  - Atrophy [Unknown]
  - Depression [Unknown]
